FAERS Safety Report 5351411-1 (Version None)
Quarter: 2007Q2

REPORT INFORMATION
  Report Type: 
  Country: None (occurrence: None)
  Receive Date: 20070521
  Receipt Date: 20070123
  Transmission Date: 20071010
  Serious: No
  Sender: FDA-Public Use
  Company Number: WAES 0611USA05122

PATIENT
  Age: 50 Year
  Sex: Female

DRUGS (9)
  1. JANUVIA [Suspect]
     Indication: DIABETES MELLITUS
     Dosage: 100 MG/DAILY/PO
     Route: 048
     Dates: start: 20061031, end: 20061109
  2. JANUVIA [Suspect]
     Indication: HYPERGLYCAEMIA
     Dosage: 100 MG/DAILY/PO
     Route: 048
     Dates: start: 20061031, end: 20061109
  3. AMBIEN [Concomitant]
  4. CYMBALTA [Concomitant]
  5. GLUCOVANCE [Concomitant]
  6. VYTROIN [Concomitant]
  7. ZYRTEC [Concomitant]
  8. ALLOPURINOL [Concomitant]
  9. LISINOPRIL [Concomitant]

REACTIONS (1)
  - BLOOD GLUCOSE INCREASED [None]
